FAERS Safety Report 6135344-9 (Version None)
Quarter: 2009Q1

REPORT INFORMATION
  Report Type: 
  Country: None (occurrence: None)
  Receive Date: 20090327
  Receipt Date: 20090317
  Transmission Date: 20090719
  Serious: Yes (Hospitalization)
  Sender: FDA-Public Use
  Company Number: SE-PFIZER INC-2009185640

PATIENT

DRUGS (10)
  1. BLINDED *PLACEBO [Suspect]
     Indication: CARDIAC FAILURE CHRONIC
     Dosage: UNK
     Route: 048
     Dates: start: 20070508
  2. BLINDED EPLERENONE [Suspect]
     Indication: CARDIAC FAILURE CHRONIC
     Dosage: UNK
     Route: 048
     Dates: start: 20070508
  3. BRICANYL [Concomitant]
     Dosage: UNK
     Route: 048
     Dates: start: 20030101
  4. BUDESONIDE [Concomitant]
     Dosage: UNK
     Route: 048
     Dates: start: 20030101
  5. FORMOTEROL [Concomitant]
     Dosage: UNK
     Route: 048
     Dates: start: 20030101
  6. DIGOXIN [Concomitant]
     Dosage: UNK
     Route: 048
     Dates: start: 20070426
  7. ENALAPRIL [Concomitant]
     Dosage: UNK
     Route: 048
     Dates: start: 20070822, end: 20090311
  8. FUROSEMIDE [Concomitant]
     Dosage: UNK
     Route: 048
     Dates: start: 20071022, end: 20090311
  9. BISOPROLOL FUMARATE [Concomitant]
     Dosage: UNK
     Route: 048
     Dates: start: 20071201
  10. SPIRIVA [Concomitant]
     Dosage: UNK
     Route: 048
     Dates: start: 20070101

REACTIONS (1)
  - SYNCOPE [None]
